FAERS Safety Report 16514889 (Version 1)
Quarter: 2019Q3

REPORT INFORMATION
  Report Type: Spontaneous
  Country: US (occurrence: US)
  Receive Date: 20190702
  Receipt Date: 20190702
  Transmission Date: 20191004
  Serious: No
  Sender: FDA-Public Use
  Company Number: US-BAUSCH-BL-2019-018160

PATIENT
  Sex: Male
  Weight: 108.96 kg

DRUGS (2)
  1. SILIQ [Suspect]
     Active Substance: BRODALUMAB
     Indication: PSORIASIS
     Dosage: WEEKS 0, 1, AND 2 FOLLOWED BY 210 MG EVERY 2 WEEKS?STARTED APPROXIMATELY 2 MONTHS AGO
     Route: 058
     Dates: start: 2019, end: 2019
  2. SILIQ [Suspect]
     Active Substance: BRODALUMAB
     Route: 058
     Dates: start: 2019

REACTIONS (2)
  - Gait disturbance [Recovering/Resolving]
  - Myalgia [Recovering/Resolving]

NARRATIVE: CASE EVENT DATE: 2019
